FAERS Safety Report 8312965-6 (Version None)
Quarter: 2012Q2

REPORT INFORMATION
  Report Type: 
  Country: None (occurrence: None)
  Receive Date: 20120426
  Receipt Date: 20120202
  Transmission Date: 20120825
  Serious: No
  Sender: FDA-Public Use
  Company Number: US-MYLANLABS-2012S1002656

PATIENT
  Age: 93 Year
  Sex: Female

DRUGS (5)
  1. LEVOTHYROXINE SODIUM [Concomitant]
     Indication: HYPOTHYROIDISM
     Route: 048
  2. LISINOPRIL [Concomitant]
     Indication: BLOOD PRESSURE INCREASED
     Route: 048
  3. ATENOLOL [Concomitant]
     Indication: BLOOD PRESSURE INCREASED
     Route: 048
  4. NISOLDIPINE [Suspect]
     Indication: BLOOD PRESSURE
     Route: 048
  5. TEMAZEPAM [Concomitant]
     Indication: INSOMNIA
     Route: 048

REACTIONS (3)
  - OEDEMA PERIPHERAL [None]
  - PRURITUS GENERALISED [None]
  - DRY SKIN [None]
